FAERS Safety Report 14931376 (Version 3)
Quarter: 2018Q2

REPORT INFORMATION
  Report Type: Report from Study
  Country: None (occurrence: US)
  Receive Date: 20180524
  Receipt Date: 20180627
  Transmission Date: 20180711
  Serious: Yes (Other)
  Sender: FDA-Public Use
  Company Number: US-ABBVIE-18K-163-2363800-00

PATIENT
  Age: 69 Year
  Sex: Male

DRUGS (5)
  1. LISINOPRIL HCTZ [Concomitant]
     Active Substance: HYDROCHLOROTHIAZIDE\LISINOPRIL
     Indication: HYPERTENSION
  2. MONTELUKAST [Concomitant]
     Active Substance: MONTELUKAST SODIUM
     Indication: CHRONIC OBSTRUCTIVE PULMONARY DISEASE
  3. HUMIRA [Suspect]
     Active Substance: ADALIMUMAB
     Indication: PSORIASIS
     Route: 058
     Dates: start: 2012
  4. ATORVASTATIN [Concomitant]
     Active Substance: ATORVASTATIN
     Indication: BLOOD CHOLESTEROL INCREASED
  5. FLUTICASONE. [Concomitant]
     Active Substance: FLUTICASONE
     Indication: HYPERSENSITIVITY

REACTIONS (9)
  - Cyst [Recovered/Resolved]
  - Skin lesion [Recovering/Resolving]
  - Basal cell carcinoma [Recovered/Resolved]
  - Benign neoplasm of skin [Unknown]
  - Fungal skin infection [Recovered/Resolved]
  - Rash [Not Recovered/Not Resolved]
  - Polycythaemia vera [Not Recovered/Not Resolved]
  - Squamous cell carcinoma [Recovered/Resolved]
  - Photosensitivity reaction [Unknown]

NARRATIVE: CASE EVENT DATE: 201710
